FAERS Safety Report 18418677 (Version 5)
Quarter: 2021Q2

REPORT INFORMATION
  Report Type: Other
  Country: AR (occurrence: AR)
  Receive Date: 20201023
  Receipt Date: 20210611
  Transmission Date: 20210717
  Serious: Yes (Hospitalization, Other)
  Sender: FDA-Public Use
  Company Number: AR-ROCHE-2700769

PATIENT
  Age: 48 Year
  Sex: Male

DRUGS (1)
  1. XOLAIR [Suspect]
     Active Substance: OMALIZUMAB
     Indication: ASTHMA
     Route: 058
     Dates: start: 20181203, end: 20190404

REACTIONS (10)
  - Infection [Unknown]
  - Asthmatic crisis [Not Recovered/Not Resolved]
  - Nasal congestion [Unknown]
  - Pneumonia [Recovered/Resolved]
  - Nasal septum deviation [Unknown]
  - Nasal polyps [Unknown]
  - Asthma [Unknown]
  - Suspected COVID-19 [Recovered/Resolved]
  - Sinusitis [Unknown]
  - Dyspnoea [Unknown]

NARRATIVE: CASE EVENT DATE: 20200822
